FAERS Safety Report 5503289-0 (Version None)
Quarter: 2007Q4

REPORT INFORMATION
  Report Type: 
  Country: None (occurrence: None)
  Receive Date: 20071031
  Receipt Date: 20071025
  Transmission Date: 20080405
  Serious: Yes (Other)
  Sender: FDA-Public Use
  Company Number: ES-ROXANE LABORATORIES, INC-2007-BP-23360RO

PATIENT
  Age: 58 Year
  Sex: Female

DRUGS (8)
  1. METHOTREXATE [Suspect]
     Indication: RHEUMATOID ARTHRITIS
     Route: 048
  2. DEXAMETHASONE 0.5MG TAB [Suspect]
     Indication: UVEITIS
     Route: 031
  3. ETANERCEPT [Suspect]
     Indication: RHEUMATOID ARTHRITIS
     Route: 058
  4. TRIAMICINOLONE [Suspect]
     Indication: UVEITIS
  5. RIFAMPIN [Concomitant]
     Indication: TUBERCULOSIS
  6. ISONIAZID [Concomitant]
     Indication: TUBERCULOSIS
  7. PYRAZINAMIDE [Concomitant]
     Indication: TUBERCULOSIS
  8. ETHAMBUTOL HCL [Concomitant]
     Indication: TUBERCULOSIS

REACTIONS (3)
  - CATARACT NUCLEAR [None]
  - DRUG INEFFECTIVE FOR UNAPPROVED INDICATION [None]
  - UVEITIS [None]
